FAERS Safety Report 4656266-6 (Version None)
Quarter: 2005Q2

REPORT INFORMATION
  Report Type: 
  Country: None (occurrence: None)
  Receive Date: 20050509
  Receipt Date: 20050321
  Transmission Date: 20051028
  Serious: No
  Sender: FDA-Public Use
  Company Number: US-GLAXOSMITHKLINE-A0550613A

PATIENT
  Sex: Female

DRUGS (3)
  1. AVANDAMET [Suspect]
     Dosage: 1TAB PER DAY
     Route: 048
     Dates: start: 20050318
  2. PAXIL [Concomitant]
  3. MINISTAT [Concomitant]
     Route: 065

REACTIONS (3)
  - DIZZINESS [None]
  - MIDDLE EAR EFFUSION [None]
  - WRONG DRUG ADMINISTERED [None]
